FAERS Safety Report 7902165-3 (Version None)
Quarter: 2011Q4

REPORT INFORMATION
  Report Type: 
  Country: None (occurrence: None)
  Receive Date: 20111108
  Receipt Date: 20111030
  Transmission Date: 20120403
  Serious: Yes (Death)
  Sender: FDA-Public Use
  Company Number: US-MYLANLABS-2010S1018450

PATIENT
  Sex: Female

DRUGS (2)
  1. FENTANYL-100 [Suspect]
     Indication: PAIN
     Route: 062
     Dates: start: 20081001, end: 20081012
  2. ALPRAZOLAM [Suspect]

REACTIONS (2)
  - TOXICITY TO VARIOUS AGENTS [None]
  - OVERDOSE [None]
